FAERS Safety Report 4669004-8 (Version None)
Quarter: 2005Q2

REPORT INFORMATION
  Report Type: 
  Country: None (occurrence: None)
  Receive Date: 20050523
  Receipt Date: 20050511
  Transmission Date: 20051028
  Serious: Yes (Hospitalization)
  Sender: FDA-Public Use
  Company Number: DE-BRISTOL-MYERS SQUIBB COMPANY-12964755

PATIENT
  Age: 54 Year
  Sex: Male

DRUGS (8)
  1. CISPLATIN [Suspect]
     Indication: SMALL CELL LUNG CANCER STAGE UNSPECIFIED
     Route: 042
     Dates: start: 20041111, end: 20050110
  2. TOPOTECAN HCL [Suspect]
     Indication: SMALL CELL LUNG CANCER STAGE UNSPECIFIED
     Route: 042
     Dates: start: 20041111
  3. TOPOTECAN HCL [Suspect]
     Route: 042
     Dates: start: 20050106, end: 20050110
  4. MOUTHWASH [Concomitant]
  5. GRANISETRON HCL [Concomitant]
  6. DIPHENHYDRAMTE [Concomitant]
  7. PANTOPRAZOLE [Concomitant]
  8. FORTECORTIN [Concomitant]

REACTIONS (1)
  - DEHYDRATION [None]
